FAERS Safety Report 5605623-X (Version None)
Quarter: 2008Q1

REPORT INFORMATION
  Report Type: 
  Country: None (occurrence: None)
  Receive Date: 20080123
  Receipt Date: 20080123
  Transmission Date: 20080703
  Serious: Yes (Hospitalization, Other)
  Sender: FDA-Public Use
  Company Number: None

PATIENT
  Age: 37 Year
  Sex: Male
  Weight: 95.2554 kg

DRUGS (2)
  1. HEPARIN SODIUM [Suspect]
     Indication: FIBRIN
     Dosage: 1200ML 3 X WEEKLY INTRAPERITONEAL
     Route: 033
     Dates: start: 20040505, end: 20080118
  2. HEPARIN SODIUM [Suspect]
     Indication: PERITONEAL DISORDER
     Dosage: 1200ML 3 X WEEKLY INTRAPERITONEAL
     Route: 033
     Dates: start: 20040505, end: 20080118

REACTIONS (5)
  - ACTIVITIES OF DAILY LIVING IMPAIRED [None]
  - INFECTION [None]
  - MYALGIA [None]
  - PHARMACEUTICAL PRODUCT COMPLAINT [None]
  - THERAPEUTIC PRODUCT CONTAMINATION [None]
